FAERS Safety Report 24947879 (Version 1)
Quarter: 2025Q1

REPORT INFORMATION
  Report Type: Spontaneous
  Country: US (occurrence: US)
  Receive Date: 20250210
  Receipt Date: 20250210
  Transmission Date: 20250409
  Serious: Yes (Other)
  Sender: SANOFI AVENTIS
  Company Number: US-SA-2025SA038101

PATIENT
  Sex: Female
  Weight: 83.91 kg

DRUGS (1)
  1. DUPIXENT [Suspect]
     Active Substance: DUPILUMAB
     Indication: Product used for unknown indication
     Dosage: 300 MG, QOW
     Route: 058

REACTIONS (7)
  - Choking [Unknown]
  - Oropharyngeal pain [Unknown]
  - Injection site swelling [Unknown]
  - Flushing [Unknown]
  - Headache [Unknown]
  - Secretion discharge [Unknown]
  - Retching [Unknown]
